FAERS Safety Report 16271022 (Version 1)
Quarter: 2019Q2

REPORT INFORMATION
  Report Type: Report from Study
  Country: GB (occurrence: GB)
  Receive Date: 20190503
  Receipt Date: 20190503
  Transmission Date: 20190711
  Serious: Yes (Death, Hospitalization)
  Sender: FDA-Public Use
  Company Number: GB-JAZZ-2017-GB-011708

PATIENT
  Age: 64 Year
  Sex: Female

DRUGS (1)
  1. CPX-351 [Suspect]
     Active Substance: CYTARABINE\DAUNORUBICIN
     Indication: ACUTE MYELOID LEUKAEMIA
     Dosage: 100 MG/M2, UNK
     Route: 042
     Dates: start: 20170712, end: 20170717

REACTIONS (1)
  - Hepatotoxicity [Recovered/Resolved with Sequelae]

NARRATIVE: CASE EVENT DATE: 20170725
